FAERS Safety Report 12883238 (Version 3)
Quarter: 2016Q4

REPORT INFORMATION
  Report Type: Spontaneous
  Country: US (occurrence: US)
  Receive Date: 20161025
  Receipt Date: 20161107
  Transmission Date: 20170207
  Serious: Yes (Other)
  Sender: FDA-Public Use
  Company Number: US-SUNOVION-2016SUN002535

PATIENT
  Sex: Female

DRUGS (3)
  1. KLONOPIN [Concomitant]
     Active Substance: CLONAZEPAM
     Dosage: 1 MG, TID
     Route: 048
  2. KEPPRA [Concomitant]
     Active Substance: LEVETIRACETAM
     Dosage: 2250 MG, QD
     Route: 048
  3. APTIOM [Suspect]
     Active Substance: ESLICARBAZEPINE ACETATE
     Indication: TEMPORAL LOBE EPILEPSY
     Dosage: 200 MG, QD
     Route: 048
     Dates: start: 20161005, end: 20161012

REACTIONS (21)
  - Drug hypersensitivity [Unknown]
  - Sleep disorder [Not Recovered/Not Resolved]
  - Urinary retention [Unknown]
  - Gait disturbance [Not Recovered/Not Resolved]
  - Generalised tonic-clonic seizure [Unknown]
  - Status epilepticus [Unknown]
  - Neurogenic bladder [Unknown]
  - Tremor [Unknown]
  - Paralysis [Unknown]
  - Mood altered [Unknown]
  - Pruritus [Not Recovered/Not Resolved]
  - Abnormal behaviour [Unknown]
  - Vision blurred [Unknown]
  - Alopecia [Unknown]
  - Urine odour abnormal [Unknown]
  - Diplopia [Not Recovered/Not Resolved]
  - Drug administration error [Unknown]
  - Movement disorder [Unknown]
  - Pain [Unknown]
  - Rash [Unknown]
  - Coordination abnormal [Not Recovered/Not Resolved]

NARRATIVE: CASE EVENT DATE: 201610
